FAERS Safety Report 7171304-7 (Version None)
Quarter: 2010Q4

REPORT INFORMATION
  Report Type: 
  Country: None (occurrence: None)
  Receive Date: 20101217
  Receipt Date: 20101211
  Transmission Date: 20110411
  Serious: Yes (Hospitalization)
  Sender: FDA-Public Use
  Company Number: US-ABBOTT-10P-163-0691058-00

PATIENT
  Sex: Female
  Weight: 72.64 kg

DRUGS (1)
  1. HUMIRA [Suspect]
     Indication: RHEUMATOID ARTHRITIS
     Dates: start: 20101001

REACTIONS (5)
  - ABDOMINAL PAIN [None]
  - APPENDICITIS [None]
  - PNEUMONIA ASPIRATION [None]
  - PYREXIA [None]
  - RESPIRATORY FAILURE [None]
